FAERS Safety Report 7600351-3 (Version None)
Quarter: 2011Q3

REPORT INFORMATION
  Report Type: 
  Country: None (occurrence: None)
  Receive Date: 20110711
  Receipt Date: 20110705
  Transmission Date: 20111222
  Serious: Yes (Other)
  Sender: FDA-Public Use
  Company Number: AU-BAYER-2011-058237

PATIENT
  Age: 78 Year
  Sex: Male

DRUGS (12)
  1. ACETYLSALICYLIC ACID SRT [Concomitant]
  2. RAMIPRIL [Concomitant]
  3. PRAVASTATIN [Concomitant]
  4. TRASYLOL [Suspect]
     Indication: MITRAL VALVE REPAIR
     Route: 042
  5. NITROGLYCERIN [Concomitant]
  6. OXAZEPAM [Concomitant]
  7. CEPHALOTHIN [Concomitant]
  8. EZETIMIBE [Concomitant]
  9. ESOMEPRAZOLE MAGNESIUM [Suspect]
  10. ACETAMINOPHEN [Concomitant]
  11. FENTANYL [Concomitant]
  12. HEPARIN [Concomitant]

REACTIONS (5)
  - PYREXIA [None]
  - ANURIA [None]
  - TUBULOINTERSTITIAL NEPHRITIS [None]
  - TYPE III IMMUNE COMPLEX MEDIATED REACTION [None]
  - RASH ERYTHEMATOUS [None]
